FAERS Safety Report 25509558 (Version 2)
Quarter: 2025Q4

REPORT INFORMATION
  Report Type: Report from Study
  Country: US (occurrence: None)
  Receive Date: 20250703
  Receipt Date: 20251015
  Transmission Date: 20260117
  Serious: Yes (Other)
  Sender: UCB
  Company Number: US-UCBSA-2025039994

PATIENT
  Age: 51 Year

DRUGS (1)
  1. BIMZELX [Suspect]
     Active Substance: BIMEKIZUMAB-BKZX
     Indication: Ankylosing spondylitis
     Dosage: 160 MILLIGRAM, EV 4 WEEKS

REACTIONS (10)
  - Feeling abnormal [Recovered/Resolved]
  - Nausea [Recovering/Resolving]
  - Loss of consciousness [Recovering/Resolving]
  - Fall [Recovering/Resolving]
  - Head injury [Recovering/Resolving]
  - Suicidal ideation [Recovered/Resolved]
  - Depression [Recovered/Resolved]
  - Hypotension [Recovering/Resolving]
  - Neck pain [Recovering/Resolving]
  - Concussion [Recovering/Resolving]
